FAERS Safety Report 4387585-9 (Version None)
Quarter: 2004Q2

REPORT INFORMATION
  Report Type: 
  Country: None (occurrence: None)
  Receive Date: 20040630
  Receipt Date: 20040514
  Transmission Date: 20050107
  Serious: No
  Sender: FDA-Public Use
  Company Number: US-GLAXOSMITHKLINE-A0510910A

PATIENT
  Sex: Female

DRUGS (8)
  1. ADVAIR HFA [Suspect]
     Route: 065
  2. TOPAMAX [Concomitant]
  3. TEGRETOL [Concomitant]
  4. LEVBID [Concomitant]
  5. SINGULAIR [Concomitant]
  6. PULMICORT [Concomitant]
  7. SYNTHROID [Concomitant]
  8. FOLIC ACID [Concomitant]

REACTIONS (2)
  - NAIL DISORDER [None]
  - TOOTH DISORDER [None]
